FAERS Safety Report 9096486 (Version 1)
Quarter: 2013Q1

REPORT INFORMATION
  Report Type: Spontaneous
  Country: DK (occurrence: None)
  Receive Date: 20130124
  Receipt Date: 20130124
  Transmission Date: 20140127
  Serious: Yes (Other)
  Sender: FDA-Public Use
  Company Number: 2013MA000535

PATIENT
  Age: 20 Year
  Sex: Female

DRUGS (2)
  1. FLUOXETINE ORAL SOLUTION USP, 20MG/5ML (ALPHARMA) (FLUOXETINE) [Suspect]
     Indication: DEPRESSION
     Route: 048
     Dates: start: 20120701, end: 20121006
  2. CO-CYPRINDIOL [Concomitant]

REACTIONS (5)
  - Diarrhoea [None]
  - Nausea [None]
  - Headache [None]
  - Fatigue [None]
  - Disorientation [None]
